FAERS Safety Report 14669293 (Version 1)
Quarter: 2018Q1

REPORT INFORMATION
  Report Type: Spontaneous
  Country: US (occurrence: US)
  Receive Date: 20180321
  Receipt Date: 20180321
  Transmission Date: 20180509
  Serious: No
  Sender: FDA-Public Use
  Company Number: None

PATIENT
  Age: 47 Year
  Sex: Female
  Weight: 78.75 kg

DRUGS (9)
  1. TRINTELLIX [Suspect]
     Active Substance: VORTIOXETINE HYDROBROMIDE
     Indication: DEPRESSION
     Dosage: ?          QUANTITY:1 CAPSULE(S);?
     Route: 048
     Dates: start: 20180101, end: 20180227
  2. TRAMADOL. [Concomitant]
     Active Substance: TRAMADOL
  3. BACLOFEN. [Concomitant]
     Active Substance: BACLOFEN
  4. MIRAPEX [Concomitant]
     Active Substance: PRAMIPEXOLE DIHYDROCHLORIDE
  5. CLINDOMYACIN [Concomitant]
  6. APIDRA [Concomitant]
     Active Substance: INSULIN GLULISINE
  7. AMOXICILLIN. [Concomitant]
     Active Substance: AMOXICILLIN
  8. LYRICA [Concomitant]
     Active Substance: PREGABALIN
  9. PREDNISONE. [Concomitant]
     Active Substance: PREDNISONE

REACTIONS (3)
  - Anxiety [None]
  - Vomiting [None]
  - Diarrhoea [None]

NARRATIVE: CASE EVENT DATE: 20180227
